FAERS Safety Report 4822979-6 (Version None)
Quarter: 2005Q4

REPORT INFORMATION
  Report Type: 
  Country: None (occurrence: None)
  Receive Date: 20051108
  Receipt Date: 20051102
  Transmission Date: 20060501
  Serious: Yes (Hospitalization)
  Sender: FDA-Public Use
  Company Number: JP-JNJFOC-20050603755

PATIENT
  Age: 27 Year
  Sex: Female

DRUGS (1)
  1. TAVANIC [Suspect]
     Route: 065
     Dates: start: 20041231, end: 20050105

REACTIONS (3)
  - ABDOMINAL INFECTION [None]
  - DRUG EXPOSURE DURING PREGNANCY [None]
  - PREMATURE LABOUR [None]
